FAERS Safety Report 23664793 (Version 1)
Quarter: 2024Q1

REPORT INFORMATION
  Report Type: Spontaneous
  Country: DE (occurrence: DE)
  Receive Date: 20240322
  Receipt Date: 20240322
  Transmission Date: 20240410
  Serious: Yes (Other)
  Sender: FDA-Public Use
  Company Number: DE-EMBRYOTOX-202304345

PATIENT
  Age: 1 Day
  Sex: Male
  Weight: 2.91 kg

DRUGS (10)
  1. PREGABALIN [Suspect]
     Active Substance: PREGABALIN
     Indication: Fibromyalgia
     Dosage: 100 [MG/D ]/ 2 X 50 MG/D 2 SEPARATED DOSES
     Route: 064
     Dates: start: 20220912, end: 20230531
  2. PANTOZOL [Concomitant]
     Active Substance: PANTOPRAZOLE SODIUM
     Indication: Gastric bypass
     Dosage: 80 [MG/D ]/ 2 X 40 MG/D
     Route: 064
     Dates: start: 20220912, end: 20230531
  3. SERTRALINE [Suspect]
     Active Substance: SERTRALINE HYDROCHLORIDE
     Indication: Anxiety disorder
     Dosage: 50 [MG/D ]
     Route: 064
     Dates: start: 20220912, end: 20230531
  4. BOOSTRIX [Concomitant]
     Active Substance: TETANUS TOXOID, REDUCED DIPHTHERIA TOXOID AND ACELLULAR PERTUSSIS VACCINE, ADSORBED ANTIGENS
     Indication: Immunisation
     Route: 064
     Dates: start: 20230405, end: 20230405
  5. DULOXETINE [Suspect]
     Active Substance: DULOXETINE
     Indication: Depression
     Dosage: 60 [MG/D ]
     Route: 064
     Dates: start: 20220912, end: 20230531
  6. VITAMIN D [Concomitant]
     Active Substance: VITAMIN D NOS
     Indication: Product used for unknown indication
     Route: 064
  7. MIRTAZAPINE [Suspect]
     Active Substance: MIRTAZAPINE
     Indication: Sleep disorder
     Dosage: 15 [MG/D ]
     Route: 064
     Dates: start: 20220912, end: 20230531
  8. METOPROLOL SUCCINATE [Concomitant]
     Active Substance: METOPROLOL SUCCINATE
     Indication: Tachycardia
     Dosage: 47.5 [MG/D ]/ 2 X 23.75 MG/D
     Route: 064
     Dates: start: 20220912, end: 20230531
  9. EUTHYROX [Concomitant]
     Active Substance: LEVOTHYROXINE SODIUM
     Indication: Hypothyroidism
     Dosage: 100 [?G/D ]
     Route: 064
     Dates: start: 20220912, end: 20230531
  10. NALBUPHINE HYDROCHLORIDE [Suspect]
     Active Substance: NALBUPHINE HYDROCHLORIDE
     Indication: Labour pain
     Route: 064

REACTIONS (3)
  - Neonatal epileptic seizure [Recovered/Resolved]
  - Neonatal asphyxia [Recovered/Resolved]
  - Foetal exposure during pregnancy [Unknown]

NARRATIVE: CASE EVENT DATE: 20230501
